FAERS Safety Report 9102723 (Version 2)
Quarter: 2013Q2

REPORT INFORMATION
  Report Type: Spontaneous
  Country: US (occurrence: US)
  Receive Date: 20130220
  Receipt Date: 20130603
  Transmission Date: 20140414
  Serious: Yes (Hospitalization)
  Sender: FDA-Public Use
  Company Number: US-B.I. PHARMACEUTICALS,INC./RIDGEFIELD-2013-BI-03931BP

PATIENT
  Age: 73 Year
  Sex: Male
  Weight: 117.93 kg

DRUGS (14)
  1. PRADAXA [Suspect]
     Indication: ATRIAL FIBRILLATION
     Dosage: 300 MG
     Route: 048
     Dates: start: 20110608, end: 20110616
  2. LISINOPRIL [Concomitant]
     Dosage: 40 MG
  3. AMIODARONE [Concomitant]
     Dosage: 200 MG
  4. FLOMAX [Concomitant]
     Dosage: 0.4 MG
  5. LOPRESSOR [Concomitant]
     Dosage: 100 MG
  6. FERROUS SULFATE [Concomitant]
     Dosage: 325 MG
  7. ACTOS PLUS METFORMIN [Concomitant]
  8. HYDROCHLOROTHIAZIDE [Concomitant]
  9. PAXIL [Concomitant]
     Dosage: 20 MG
  10. ASPIRIN [Concomitant]
     Dosage: 81 MG
  11. ZOCOR [Concomitant]
     Dosage: 40 MG
  12. ZETIA [Concomitant]
     Dosage: 10 MG
  13. LASIX [Concomitant]
     Dosage: 20 MG
  14. POTASSIUM [Concomitant]
     Dosage: 10 MEQ

REACTIONS (4)
  - Shock haemorrhagic [Recovered/Resolved]
  - Upper gastrointestinal haemorrhage [Unknown]
  - Haemorrhagic anaemia [Unknown]
  - Coagulopathy [Unknown]
